FAERS Safety Report 14703108 (Version 2)
Quarter: 2019Q1

REPORT INFORMATION
  Report Type: Report from Study
  Country: US (occurrence: US)
  Receive Date: 20180402
  Receipt Date: 20190102
  Transmission Date: 20190417
  Serious: Yes (Hospitalization, Other)
  Sender: FDA-Public Use
  Company Number: US-ACADIA PHARMACEUTICALS INC.-ACA-2018-007962

PATIENT
  Age: 78 Year
  Sex: Male

DRUGS (9)
  1. NUPLAZID [Suspect]
     Active Substance: PIMAVANSERIN TARTRATE
     Indication: PARKINSON^S DISEASE PSYCHOSIS
     Dosage: 34 MG, QD
     Route: 048
     Dates: start: 20161118
  2. ENTACAPONE. [Concomitant]
     Active Substance: ENTACAPONE
     Indication: PRODUCT USED FOR UNKNOWN INDICATION
  3. METOPROLOL. [Concomitant]
     Active Substance: METOPROLOL
     Indication: PRODUCT USED FOR UNKNOWN INDICATION
  4. BUMETANIDE. [Concomitant]
     Active Substance: BUMETANIDE
     Indication: PRODUCT USED FOR UNKNOWN INDICATION
  5. SERTRALINE [Concomitant]
     Active Substance: SERTRALINE HYDROCHLORIDE
     Indication: PRODUCT USED FOR UNKNOWN INDICATION
  6. NUPLAZID [Suspect]
     Active Substance: PIMAVANSERIN TARTRATE
     Dosage: 34 MG, QD
     Route: 048
     Dates: start: 20180214
  7. ROPINIROLE HCL [Concomitant]
     Active Substance: ROPINIROLE HYDROCHLORIDE
     Indication: PRODUCT USED FOR UNKNOWN INDICATION
  8. CARBIDOPA. [Concomitant]
     Active Substance: CARBIDOPA
     Indication: PRODUCT USED FOR UNKNOWN INDICATION
  9. APOKYN [Concomitant]
     Active Substance: APOMORPHINE HYDROCHLORIDE
     Indication: PRODUCT USED FOR UNKNOWN INDICATION

REACTIONS (3)
  - Urinary tract infection [Unknown]
  - Hospitalisation [Unknown]
  - Rehabilitation therapy [Unknown]

NARRATIVE: CASE EVENT DATE: 201803
